FAERS Safety Report 6037762-6 (Version None)
Quarter: 2009Q1

REPORT INFORMATION
  Report Type: 
  Country: None (occurrence: None)
  Receive Date: 20090113
  Receipt Date: 20081223
  Transmission Date: 20090719
  Serious: Yes (Hospitalization)
  Sender: FDA-Public Use
  Company Number: 129718

PATIENT
  Age: 3 Year
  Sex: Male
  Weight: 16.4 kg

DRUGS (6)
  1. CYTARABINE [Suspect]
     Indication: ACUTE MYELOID LEUKAEMIA
     Dosage: 1000 MG/M2, EVERY 12 HOURS FOR 8 TOTAL DOSES, DAYS 1-4)
     Dates: start: 20081114, end: 20081117
  2. GENTAMYCIN SULFATE [Suspect]
     Indication: EVIDENCE BASED TREATMENT
     Dosage: UNKNOWN (NOT REPORTED)
     Route: 065
  3. AMPHOTERICIN B [Suspect]
     Indication: EVIDENCE BASED TREATMENT
     Dates: start: 20081201
  4. IDARUBICIN HCL [Suspect]
     Indication: ACUTE MYELOID LEUKAEMIA
     Dosage: 12 MG/M2 (ONCE DAILY FOR 3 TOTAL DOSES, DAYS 2-4)
     Dates: start: 20081115, end: 20081117
  5. INVESTIGATIONAL DRUG [Suspect]
     Indication: ACUTE MYELOID LEUKAEMIA
     Dosage: 62.5 MG/M2, TWICE DAILY, DAYS 5-28, ORAL
     Route: 048
     Dates: start: 20081118
  6. ZOSYN [Suspect]
     Indication: EVIDENCE BASED TREATMENT

REACTIONS (6)
  - ALANINE AMINOTRANSFERASE INCREASED [None]
  - ANOREXIA [None]
  - ASPARTATE AMINOTRANSFERASE INCREASED [None]
  - BLOOD ALBUMIN DECREASED [None]
  - FEBRILE NEUTROPENIA [None]
  - HYPOKALAEMIA [None]
